FAERS Safety Report 6389175-5 (Version None)
Quarter: 2009Q4

REPORT INFORMATION
  Report Type: 
  Country: None (occurrence: None)
  Receive Date: 20091006
  Receipt Date: 20090924
  Transmission Date: 20100525
  Serious: Yes (Other)
  Sender: FDA-Public Use
  Company Number: JP-BAYER-200913539BYL

PATIENT
  Age: 40 Year
  Sex: Female

DRUGS (1)
  1. BETAFERON [Suspect]
     Indication: MULTIPLE SCLEROSIS
     Dosage: TOTAL DAILY DOSE: 800 MIU
     Route: 058
     Dates: start: 20010101, end: 20090101

REACTIONS (1)
  - GLOMERULONEPHRITIS MEMBRANOPROLIFERATIVE [None]
